FAERS Safety Report 10965696 (Version 1)
Quarter: 2015Q1

REPORT INFORMATION
  Report Type: Spontaneous
  Country: US (occurrence: None)
  Receive Date: 20150327
  Receipt Date: 20150327
  Transmission Date: 20150721
  Serious: Yes (Life-Threatening)
  Sender: FDA-Public Use
  Company Number: None

PATIENT
  Age: 69 Year
  Sex: Female
  Weight: 68.95 kg

DRUGS (12)
  1. SYNTHROID [Concomitant]
     Active Substance: LEVOTHYROXINE SODIUM
  2. FLAXSEED [Concomitant]
     Active Substance: FLAX SEED
  3. ASPIRIN. [Concomitant]
     Active Substance: ASPIRIN
  4. FISH OIL [Concomitant]
     Active Substance: FISH OIL
  5. LIPITOR [Concomitant]
     Active Substance: ATORVASTATIN CALCIUM
  6. B LACK COHOSH [Concomitant]
  7. ATENOLOL AND CHLORTHALIDONE [Concomitant]
     Active Substance: ATENOLOL\CHLORTHALIDONE
  8. SPIRONOLACTONE. [Concomitant]
     Active Substance: SPIRONOLACTONE
  9. XANAX [Concomitant]
     Active Substance: ALPRAZOLAM
  10. ANTIOXIDANT [Concomitant]
     Active Substance: UNSPECIFIED INGREDIENT
  11. KENALOG [Suspect]
     Active Substance: TRIAMCINOLONE ACETONIDE
     Indication: MENISCUS INJURY
     Dates: start: 20150216
  12. ATENOLOL. [Concomitant]
     Active Substance: ATENOLOL

REACTIONS (31)
  - Confusional state [None]
  - Tremor [None]
  - Vision blurred [None]
  - Insomnia [None]
  - Back pain [None]
  - Palpitations [None]
  - Diarrhoea [None]
  - Hot flush [None]
  - Eye pain [None]
  - Epistaxis [None]
  - Muscle spasms [None]
  - Hypertension [None]
  - Dizziness [None]
  - Erythema [None]
  - Hyperthyroidism [None]
  - Heart rate irregular [None]
  - Abdominal pain [None]
  - Fatigue [None]
  - Hyperhidrosis [None]
  - Anxiety [None]
  - Oropharyngeal pain [None]
  - Gastrooesophageal reflux disease [None]
  - Headache [None]
  - Rash [None]
  - Nausea [None]
  - Asthenia [None]
  - Muscle tightness [None]
  - Abdominal pain upper [None]
  - Chest pain [None]
  - Heart rate increased [None]
  - Pruritus [None]

NARRATIVE: CASE EVENT DATE: 20150216
